FAERS Safety Report 8501410-3 (Version None)
Quarter: 2012Q3

REPORT INFORMATION
  Report Type: 
  Country: None (occurrence: None)
  Receive Date: 20120710
  Receipt Date: 20120702
  Transmission Date: 20120928
  Serious: Yes (Death)
  Sender: FDA-Public Use
  Company Number: GB-BAXTER-2012BAX010629

PATIENT
  Age: 14 Year

DRUGS (2)
  1. CYCLOPHOSPHAMIDE [Suspect]
  2. MERCAPTOETHANE SULFONATE SODIUM [Concomitant]
     Indication: PROPHYLAXIS

REACTIONS (1)
  - CYSTITIS HAEMORRHAGIC [None]
